FAERS Safety Report 21700134 (Version 1)
Quarter: 2022Q4

REPORT INFORMATION
  Report Type: Spontaneous
  Country: US (occurrence: US)
  Receive Date: 20221208
  Receipt Date: 20221208
  Transmission Date: 20230112
  Serious: Yes (Other)
  Sender: FDA-Public Use
  Company Number: US-BAYER-2022P025953

PATIENT
  Age: 44 Year
  Sex: Female

DRUGS (5)
  1. ADEMPAS [Suspect]
     Active Substance: RIOCIGUAT
  2. KEVZARA [Suspect]
     Active Substance: SARILUMAB
     Indication: Pulmonary arterial hypertension
     Dosage: UNK
     Dates: start: 20220409
  3. KEVZARA [Suspect]
     Active Substance: SARILUMAB
     Indication: Pulmonary hypertension
  4. KEVZARA [Suspect]
     Active Substance: SARILUMAB
     Indication: Rheumatoid arthritis
  5. ORENCIA [Concomitant]
     Active Substance: ABATACEPT

REACTIONS (2)
  - Deafness unilateral [None]
  - Tinnitus [None]
